FAERS Safety Report 13105628 (Version 3)
Quarter: 2019Q2

REPORT INFORMATION
  Report Type: Spontaneous
  Country: US (occurrence: US)
  Receive Date: 20170111
  Receipt Date: 20190620
  Transmission Date: 20190711
  Serious: Yes (Hospitalization)
  Sender: FDA-Public Use
  Company Number: US-INDIVIOR LIMITED-INDV-097612-2016

PATIENT
  Age: 43 Year
  Sex: Male

DRUGS (3)
  1. BUPRENORPHINE. [Suspect]
     Active Substance: BUPRENORPHINE
     Indication: DRUG DEPENDENCE
     Dosage: 8 MG, 3 TIMES DAILY
     Route: 065
  2. BUPRENORPHINE. [Suspect]
     Active Substance: BUPRENORPHINE
     Dosage: UNK
     Route: 058
  3. BUPRENORPHINE/NALOXONE [Suspect]
     Active Substance: BUPRENORPHINE\NALOXONE
     Indication: DRUG DEPENDENCE
     Dosage: UNK
     Route: 065

REACTIONS (11)
  - Product use issue [Unknown]
  - Soft tissue necrosis [Unknown]
  - Drug abuse [Unknown]
  - Vomiting [Unknown]
  - Injection site infection [Unknown]
  - Injection site reaction [Unknown]
  - Nausea [Unknown]
  - Intentional product use issue [Unknown]
  - Skin lesion [Unknown]
  - Skin mass [Unknown]
  - Drug screen positive [Unknown]
